FAERS Safety Report 13343528 (Version 1)
Quarter: 2017Q1

REPORT INFORMATION
  Report Type: Spontaneous
  Country: US (occurrence: US)
  Receive Date: 20170316
  Receipt Date: 20170316
  Transmission Date: 20170428
  Serious: Yes (Other)
  Sender: FDA-Public Use
  Company Number: US-ALLERGAN-1709611US

PATIENT

DRUGS (1)
  1. ARMOUR THYROID [Suspect]
     Active Substance: THYROID, PORCINE
     Indication: PRODUCT USED FOR UNKNOWN INDICATION

REACTIONS (8)
  - Feeling drunk [Unknown]
  - Weight increased [Unknown]
  - Abdominal distension [Unknown]
  - Dyspnoea [Unknown]
  - Feeling cold [Unknown]
  - Muscular weakness [Unknown]
  - Somnolence [Unknown]
  - Laboratory test abnormal [Unknown]
